FAERS Safety Report 17580518 (Version 1)
Quarter: 2020Q1

REPORT INFORMATION
  Report Type: Spontaneous
  Country: US (occurrence: US)
  Receive Date: 20200320
  Receipt Date: 20200320
  Transmission Date: 20200409
  Serious: Yes (Other)
  Sender: FDA-Public Use
  Company Number: None

PATIENT
  Age: 73 Year
  Sex: Female

DRUGS (12)
  1. ADEMPAS [Suspect]
     Active Substance: RIOCIGUAT
     Indication: PULMONARY HYPERTENSION
     Route: 048
     Dates: start: 20180309
  2. LOSARTAN. [Concomitant]
     Active Substance: LOSARTAN
  3. ATORVASTATIN [Concomitant]
     Active Substance: ATORVASTATIN
  4. HYDROCORTISONE TOP CREAM [Concomitant]
  5. LEVOTHYROXINE. [Concomitant]
     Active Substance: LEVOTHYROXINE
  6. METFORMIN [Concomitant]
     Active Substance: METFORMIN HYDROCHLORIDE
  7. FERROUS SULFATE. [Concomitant]
     Active Substance: FERROUS SULFATE
  8. FAMOTIDINE. [Concomitant]
     Active Substance: FAMOTIDINE
  9. PRADAXA [Concomitant]
     Active Substance: DABIGATRAN ETEXILATE MESYLATE
  10. TROSPIUM [Concomitant]
     Active Substance: TROSPIUM
  11. NITROFURANTOIN. [Concomitant]
     Active Substance: NITROFURANTOIN
  12. OXYBUTUYNIN [Concomitant]

REACTIONS (3)
  - Urinary tract infection [None]
  - Gastrooesophageal reflux disease [None]
  - Fatigue [None]

NARRATIVE: CASE EVENT DATE: 20200315
